FAERS Safety Report 22588654 (Version 2)
Quarter: 2023Q2

REPORT INFORMATION
  Report Type: Spontaneous
  Country: JP (occurrence: JP)
  Receive Date: 20230612
  Receipt Date: 20230615
  Transmission Date: 20230722
  Serious: Yes (Other)
  Sender: FDA-Public Use
  Company Number: JP-002147023-NVSJ2023JP009412

PATIENT
  Age: 41 Year
  Sex: Female

DRUGS (4)
  1. SUMATRIPTAN SUCCINATE [Suspect]
     Active Substance: SUMATRIPTAN SUCCINATE
     Indication: Headache
     Dosage: UNK, PRN
     Route: 048
  2. NICARDIPINE [Concomitant]
     Active Substance: NICARDIPINE
     Indication: Product used for unknown indication
     Dosage: 2 MG/H
     Route: 041
  3. NICARDIPINE [Concomitant]
     Active Substance: NICARDIPINE
     Dosage: 4 MG/H
     Route: 041
  4. NIFEDIPINE [Concomitant]
     Active Substance: NIFEDIPINE
     Indication: Product used for unknown indication
     Dosage: 40 MG
     Route: 065

REACTIONS (3)
  - Reversible cerebral vasoconstriction syndrome [Recovering/Resolving]
  - Concomitant disease aggravated [Recovering/Resolving]
  - Therapeutic product effect incomplete [Unknown]
